FAERS Safety Report 19512331 (Version 3)
Quarter: 2023Q2

REPORT INFORMATION
  Report Type: Report from Study
  Country: EG (occurrence: EG)
  Receive Date: 20210709
  Receipt Date: 20230623
  Transmission Date: 20230722
  Serious: Yes (Other)
  Sender: FDA-Public Use
  Company Number: EG-NOVARTISPH-NVSC2021EG065263

PATIENT
  Age: 22 Year
  Sex: Female
  Weight: 90 kg

DRUGS (6)
  1. COSENTYX [Suspect]
     Active Substance: SECUKINUMAB
     Indication: Psoriasis
     Dosage: 2 DF, (300 MG) QMO (8 YEARS AGO)
     Route: 058
     Dates: start: 2015, end: 201609
  2. COSENTYX [Suspect]
     Active Substance: SECUKINUMAB
     Dosage: 2 DF, (300 MG) QMO
     Route: 058
     Dates: start: 201711, end: 202104
  3. COSENTYX [Suspect]
     Active Substance: SECUKINUMAB
     Dosage: 2 DF, (300 MG) QMO
     Route: 058
     Dates: start: 202102
  4. COSENTYX [Suspect]
     Active Substance: SECUKINUMAB
     Dosage: 2 DF, (300 MG) QMO
     Route: 058
     Dates: start: 202103
  5. COSENTYX [Suspect]
     Active Substance: SECUKINUMAB
     Dosage: 300 MG, QW (2 PENS WEEKLY FOR 1 MONTH)
     Route: 058
     Dates: start: 202106
  6. FOLIC ACID [Concomitant]
     Active Substance: FOLIC ACID
     Indication: Product used for unknown indication
     Dosage: 1 DF, QD (UNKNOWN DOSE)
     Route: 065

REACTIONS (7)
  - Abortion spontaneous [Recovered/Resolved]
  - Uterine leiomyoma [Not Recovered/Not Resolved]
  - Fatigue [Recovered/Resolved]
  - Fatigue [Recovered/Resolved]
  - Psoriasis [Recovered/Resolved]
  - Psoriasis [Recovering/Resolving]
  - Maternal exposure during pregnancy [Unknown]

NARRATIVE: CASE EVENT DATE: 20170101
